FAERS Safety Report 8242952-8 (Version None)
Quarter: 2012Q1

REPORT INFORMATION
  Report Type: 
  Country: None (occurrence: None)
  Receive Date: 20120329
  Receipt Date: 20120329
  Transmission Date: 20120608
  Serious: Yes (Life-Threatening, Hospitalization)
  Sender: FDA-Public Use
  Company Number: None

PATIENT
  Age: 62 Year
  Sex: Male
  Weight: 70.306 kg

DRUGS (1)
  1. ZOLOFT [Suspect]

REACTIONS (4)
  - PANIC ATTACK [None]
  - ANXIETY [None]
  - ABASIA [None]
  - CHEST PAIN [None]
